FAERS Safety Report 19047978 (Version 17)
Quarter: 2021Q4

REPORT INFORMATION
  Report Type: Spontaneous
  Country: US (occurrence: US)
  Receive Date: 20210323
  Receipt Date: 20211109
  Transmission Date: 20220303
  Serious: Yes (Hospitalization, Other)
  Sender: FDA-Public Use
  Company Number: US-GLAXOSMITHKLINE-US2021AMR064304

PATIENT
  Age: 46 Year
  Sex: Male
  Weight: 62.132 kg

DRUGS (16)
  1. FLOLAN [Suspect]
     Active Substance: EPOPROSTENOL SODIUM
     Indication: Pulmonary arterial hypertension
     Dosage: 16 DF, CO, 16 NG/KG/MIN
     Route: 042
     Dates: start: 20210324
  2. FLOLAN [Suspect]
     Active Substance: EPOPROSTENOL SODIUM
     Dosage: 18 DF, CO, 18 NG/KG/MIN, CONCENTRATION: 15,000 NG/ML PUMP RATE: 92 ML/DAY
     Route: 042
     Dates: start: 20210324
  3. FLOLAN [Suspect]
     Active Substance: EPOPROSTENOL SODIUM
     Dosage: 19 DF, CO, 19NG/KG/MIN
  4. FLOLAN [Suspect]
     Active Substance: EPOPROSTENOL SODIUM
     Dosage: 17 DF, CO, 17NG/KG/MIN
  5. FLOLAN [Suspect]
     Active Substance: EPOPROSTENOL SODIUM
     Indication: Pulmonary arterial hypertension
     Dosage: 26 DF, CO,26NG/KG/MIN
     Dates: start: 20210324
  6. FLOLAN [Suspect]
     Active Substance: EPOPROSTENOL SODIUM
     Dosage: UNK,20 NG/KG/MIN
     Dates: start: 20210324
  7. FLOLAN [Suspect]
     Active Substance: EPOPROSTENOL SODIUM
     Indication: Pulmonary arterial hypertension
     Dosage: 21 DF, CO , 21NG/KG/MIN
     Dates: start: 20210324
  8. FLOLAN [Suspect]
     Active Substance: EPOPROSTENOL SODIUM
     Indication: Pulmonary arterial hypertension
     Dosage: 22 DF, CO, 22 NG/KG/MIN
     Dates: start: 20210324
  9. GLYCINE\MANNITOL\SODIUM CHLORIDE [Suspect]
     Active Substance: GLYCINE\MANNITOL\SODIUM CHLORIDE
     Indication: Pulmonary arterial hypertension
     Dosage: UNK
     Dates: start: 20210324
  10. GLYCINE\MANNITOL\SODIUM CHLORIDE [Suspect]
     Active Substance: GLYCINE\MANNITOL\SODIUM CHLORIDE
     Dosage: UNK
     Dates: start: 20210324
  11. GLYCINE\MANNITOL\SODIUM CHLORIDE [Suspect]
     Active Substance: GLYCINE\MANNITOL\SODIUM CHLORIDE
     Dosage: UNK
     Dates: start: 20210324
  12. GLYCINE\MANNITOL\SODIUM CHLORIDE [Suspect]
     Active Substance: GLYCINE\MANNITOL\SODIUM CHLORIDE
     Dosage: UNK
     Dates: start: 20210324
  13. GLYCINE\MANNITOL\SODIUM CHLORIDE [Suspect]
     Active Substance: GLYCINE\MANNITOL\SODIUM CHLORIDE
     Dosage: UNK
     Dates: start: 20210324
  14. GLYCINE\MANNITOL\SODIUM CHLORIDE [Suspect]
     Active Substance: GLYCINE\MANNITOL\SODIUM CHLORIDE
     Dosage: UNK
     Dates: start: 20210324
  15. TYVASO [Suspect]
     Active Substance: TREPROSTINIL
     Indication: Pulmonary arterial hypertension
     Dosage: UNK, QID, 18-54 ?G (3-9 BREATHS)
  16. SILDENAFIL CITRATE [Concomitant]
     Active Substance: SILDENAFIL CITRATE
     Indication: Product used for unknown indication
     Dosage: UNK

REACTIONS (23)
  - Vascular device infection [Unknown]
  - Administration site pruritus [Not Recovered/Not Resolved]
  - Catheter site extravasation [Unknown]
  - Skin infection [Unknown]
  - Device related infection [Unknown]
  - Hospitalisation [Unknown]
  - Headache [Unknown]
  - Nausea [Unknown]
  - Dizziness [Unknown]
  - Nasal congestion [Unknown]
  - Diarrhoea [Unknown]
  - Oxygen saturation decreased [Unknown]
  - Vision blurred [Unknown]
  - Gout [Unknown]
  - Arthritis [Unknown]
  - Administration site rash [Not Recovered/Not Resolved]
  - Blister [Unknown]
  - Erythema [Not Recovered/Not Resolved]
  - Pruritus [Not Recovered/Not Resolved]
  - Catheter site inflammation [Unknown]
  - Catheter site pruritus [Unknown]
  - Catheter site haemorrhage [Unknown]
  - Rash [Unknown]

NARRATIVE: CASE EVENT DATE: 20210602
